FAERS Safety Report 6451011-6 (Version None)
Quarter: 2009Q4

REPORT INFORMATION
  Report Type: 
  Country: None (occurrence: None)
  Receive Date: 20091123
  Receipt Date: 20091110
  Transmission Date: 20100525
  Serious: Yes (Other)
  Sender: FDA-Public Use
  Company Number: B0605929A

PATIENT
  Age: 59 Year
  Sex: Female

DRUGS (11)
  1. CEFUROXIME [Suspect]
     Indication: CATARACT OPERATION
     Dates: start: 20080429, end: 20080429
  2. PHENYLEPHRINE [Suspect]
     Indication: MYDRIASIS
     Route: 047
     Dates: start: 20080429, end: 20080429
  3. CYCLOPENTOLATE HCL [Suspect]
     Indication: CYCLOPLEGIA
     Route: 047
     Dates: start: 20080429, end: 20080429
  4. VOLTAREN [Suspect]
     Route: 047
     Dates: start: 20080429, end: 20080429
  5. SODIUM HYALURONATE [Suspect]
     Indication: CATARACT OPERATION
     Dates: start: 20080429, end: 20080429
  6. ADRENALINE [Suspect]
     Indication: CATARACT OPERATION
     Dates: start: 20080429, end: 20080429
  7. WATER FOR INJECTIONS [Concomitant]
     Indication: MEDICATION DILUTION
     Dates: start: 20080429, end: 20080429
  8. POVIDONE IODINE [Concomitant]
     Route: 061
     Dates: start: 20080429, end: 20080429
  9. MAXITROL (DROPS) [Concomitant]
     Route: 047
     Dates: start: 20080429
  10. FLUOXETINE [Concomitant]
     Route: 048
  11. CO-DYDRAMOL [Concomitant]
     Route: 048

REACTIONS (3)
  - BLINDNESS [None]
  - CORNEAL ABRASION [None]
  - RETINOGRAM ABNORMAL [None]
